FAERS Safety Report 10498358 (Version 1)
Quarter: 2014Q4

REPORT INFORMATION
  Report Type: Spontaneous
  Country: US (occurrence: None)
  Receive Date: 20141003
  Receipt Date: 20141003
  Transmission Date: 20150528
  Serious: No
  Sender: FDA-Public Use
  Company Number: None

PATIENT
  Age: 81 Year
  Sex: Male
  Weight: 92.63 kg

DRUGS (5)
  1. DOXORUBICIN HYDROCHLORIDE. [Suspect]
     Active Substance: DOXORUBICIN HYDROCHLORIDE
  2. CYCLOPHOSPHAMIDE. [Suspect]
     Active Substance: CYCLOPHOSPHAMIDE
  3. PREDNISONE. [Suspect]
     Active Substance: PREDNISONE
  4. RITUXIMAB (MOAB C2B8 ANTI CD20, CHIMERIC) [Suspect]
     Active Substance: RITUXIMAB
  5. VINCRISTINE SULFATE. [Suspect]
     Active Substance: VINCRISTINE SULFATE

REACTIONS (7)
  - Respiratory disorder [None]
  - Pulseless electrical activity [None]
  - Heart rate decreased [None]
  - Blood pressure decreased [None]
  - White blood cell count decreased [None]
  - Electrocardiogram ST segment depression [None]
  - Arrhythmia [None]

NARRATIVE: CASE EVENT DATE: 20140927
